FAERS Safety Report 9700193 (Version 1)
Quarter: 2013Q4

REPORT INFORMATION
  Report Type: Spontaneous
  Country: FR (occurrence: FR)
  Receive Date: 20131121
  Receipt Date: 20131121
  Transmission Date: 20140711
  Serious: Yes (Hospitalization)
  Sender: FDA-Public Use
  Company Number: FR-ASTRAZENECA-2013SE84327

PATIENT
  Age: 4481 Week
  Sex: Male

DRUGS (8)
  1. ATACAND [Suspect]
     Indication: HYPERTENSION
     Route: 048
     Dates: end: 20130814
  2. INEXIUM [Suspect]
     Route: 048
     Dates: start: 20130802, end: 20130805
  3. AMLODIPINE ARROW [Suspect]
     Indication: HYPERTENSION
     Route: 048
     Dates: start: 20130807, end: 20130814
  4. PRADAXA [Concomitant]
     Route: 048
     Dates: end: 20130809
  5. SOTALOL [Concomitant]
     Route: 048
     Dates: end: 20130805
  6. PRAVASTATINE [Concomitant]
     Route: 048
     Dates: end: 20130805
  7. HALDOL [Concomitant]
     Dates: end: 20130805
  8. ENANTONE [Concomitant]
     Dates: end: 20130805

REACTIONS (8)
  - Transaminases increased [Recovered/Resolved]
  - Gamma-glutamyltransferase increased [Recovered/Resolved]
  - Bilirubin conjugated increased [Recovered/Resolved]
  - Blood creatinine increased [Unknown]
  - Condition aggravated [Unknown]
  - Weight decreased [Unknown]
  - Faeces discoloured [Unknown]
  - Therapy cessation [Unknown]
